FAERS Safety Report 15572431 (Version 1)
Quarter: 2018Q4

REPORT INFORMATION
  Report Type: Spontaneous
  Country: US (occurrence: US)
  Receive Date: 20181031
  Receipt Date: 20181031
  Transmission Date: 20190205
  Serious: No
  Sender: FDA-Public Use
  Company Number: US-EISAI MEDICAL RESEARCH-EC-2018-046790

PATIENT
  Sex: Female

DRUGS (1)
  1. BELVIQ XR [Suspect]
     Active Substance: LORCASERIN HYDROCHLORIDE
     Indication: WEIGHT DECREASED
     Route: 048
     Dates: start: 2018, end: 2018

REACTIONS (3)
  - Fatigue [Recovered/Resolved]
  - Emotional disorder [Recovered/Resolved]
  - Sleep deficit [Recovered/Resolved]

NARRATIVE: CASE EVENT DATE: 2018
